FAERS Safety Report 8816818 (Version 2)
Quarter: 2012Q4

REPORT INFORMATION
  Report Type: Spontaneous
  Country: GB (occurrence: None)
  Receive Date: 20121001
  Receipt Date: 20121010
  Transmission Date: 20130627
  Serious: Yes (Other)
  Sender: FDA-Public Use
  Company Number: GER/UKI/12/0026019

PATIENT
  Sex: Male
  Weight: 80 kg

DRUGS (1)
  1. CIPROFLOXACIN (CIPROFLOXACIN) [Suspect]
     Indication: DRUG USE FOR UNKNOWN INDICATION
     Route: 048
     Dates: start: 20120903, end: 20120910

REACTIONS (4)
  - Joint dislocation [None]
  - Tendon pain [None]
  - Limb injury [None]
  - No reaction on previous exposure to drug [None]
